FAERS Safety Report 8052386-7 (Version None)
Quarter: 2012Q1

REPORT INFORMATION
  Report Type: 
  Country: None (occurrence: None)
  Receive Date: 20120118
  Receipt Date: 20120109
  Transmission Date: 20120608
  Serious: Yes (Hospitalization, Other)
  Sender: FDA-Public Use
  Company Number: CA-ELI_LILLY_AND_COMPANY-CA201201002317

PATIENT
  Age: 35 Year
  Sex: Male

DRUGS (7)
  1. CYMBALTA [Suspect]
     Dosage: 90 MG, UNK
  2. CYMBALTA [Suspect]
     Dosage: 60 MG, UNK
  3. CELEXA [Concomitant]
  4. OXYCONTIN [Concomitant]
  5. CYMBALTA [Suspect]
     Dosage: 30 MG, UNK
  6. VALPROATE SODIUM [Concomitant]
  7. CLONAZEPAM [Concomitant]

REACTIONS (2)
  - SUICIDAL IDEATION [None]
  - INTENTIONAL SELF-INJURY [None]
